FAERS Safety Report 9729681 (Version 1)
Quarter: 2013Q4

REPORT INFORMATION
  Report Type: Spontaneous
  Country: US (occurrence: US)
  Receive Date: 20131204
  Receipt Date: 20131204
  Transmission Date: 20140711
  Serious: No
  Sender: FDA-Public Use
  Company Number: US-GILEAD-2009-0020935

PATIENT
  Age: 67 Year
  Sex: Female

DRUGS (9)
  1. LETAIRIS [Suspect]
     Indication: PULMONARY ARTERIAL HYPERTENSION
     Route: 048
     Dates: start: 20090305, end: 20090315
  2. DUONEB [Concomitant]
  3. SPIRIVA [Concomitant]
  4. SINGULAR [Concomitant]
  5. ADVAIR [Concomitant]
  6. ALLEGRA [Concomitant]
  7. BONIVA [Concomitant]
  8. PREMARIN [Concomitant]
  9. RESTASIS [Concomitant]

REACTIONS (1)
  - Nausea [Recovered/Resolved]
